FAERS Safety Report 24858403 (Version 1)
Quarter: 2025Q1

REPORT INFORMATION
  Report Type: Spontaneous
  Country: VN (occurrence: VN)
  Receive Date: 20250117
  Receipt Date: 20250117
  Transmission Date: 20250409
  Serious: Yes (Death)
  Sender: MERCK
  Company Number: VN-009507513-2501VNM004508

PATIENT
  Age: 82 Year
  Sex: Female

DRUGS (3)
  1. CASPOFUNGIN ACETATE [Suspect]
     Active Substance: CASPOFUNGIN ACETATE
     Indication: Candida infection
     Dates: start: 20211112, end: 20211112
  2. CASPOFUNGIN ACETATE [Suspect]
     Active Substance: CASPOFUNGIN ACETATE
     Indication: Candida infection
     Dosage: 50 MILLIGRAM, Q24H. MAINTENANCE DOSE
     Dates: start: 20211113, end: 20211126
  3. MICAFUNGIN [Concomitant]
     Active Substance: MICAFUNGIN SODIUM
     Indication: Candida infection
     Dosage: 100 MILLIGRAM, Q24H
     Dates: start: 20211127, end: 20211128

REACTIONS (1)
  - Drug ineffective [Fatal]
